FAERS Safety Report 19849878 (Version 1)
Quarter: 2021Q3

REPORT INFORMATION
  Report Type: Spontaneous
  Country: US (occurrence: US)
  Receive Date: 20210917
  Receipt Date: 20210917
  Transmission Date: 20211014
  Serious: No
  Sender: FDA-Public Use
  Company Number: US-CATALYST PHARMACEUTICALS, INC-2021CAT00328

PATIENT
  Age: 73 Year
  Sex: Female
  Weight: 53.97 kg

DRUGS (12)
  1. FIRDAPSE [Suspect]
     Active Substance: AMIFAMPRIDINE PHOSPHATE
     Dosage: 15 MG, 4X/DAY
     Route: 048
     Dates: start: 20210708, end: 2021
  2. FIRDAPSE [Suspect]
     Active Substance: AMIFAMPRIDINE PHOSPHATE
     Dosage: 65 MG PER DAY
     Route: 048
     Dates: start: 2021
  3. XARELTO [Concomitant]
     Active Substance: RIVAROXABAN
  4. IVIG [Concomitant]
     Active Substance: HUMAN IMMUNOGLOBULIN G
     Dosage: EVERY 2 WEEKS
     Route: 042
  5. FIRDAPSE [Suspect]
     Active Substance: AMIFAMPRIDINE PHOSPHATE
     Indication: MYASTHENIC SYNDROME
     Dosage: 15 MG, 4X/DAY
     Route: 048
     Dates: start: 202106, end: 20210706
  6. CELEXA [Concomitant]
     Active Substance: CITALOPRAM HYDROBROMIDE
  7. AMLODIPINE [Concomitant]
     Active Substance: AMLODIPINE BESYLATE
  8. FIRDAPSE [Suspect]
     Active Substance: AMIFAMPRIDINE PHOSPHATE
     Dosage: 20 MG, 4X/DAY
     Route: 048
     Dates: start: 20210707, end: 20210707
  9. TRAMADOL. [Concomitant]
     Active Substance: TRAMADOL
     Dosage: ABOUT 4 TABLETS/DAY (2 IN THE MORNING AND ONE IN THE AFTERNOON AND SOMETIMES IN THE EVENING)
  10. PYRIDOSTIGMINE [Concomitant]
     Active Substance: PYRIDOSTIGMINE
  11. PREDNISONE. [Concomitant]
     Active Substance: PREDNISONE
  12. UNSPECIFIED IV STEROID [Concomitant]
     Dosage: 1000 MG EVERY 2 WEEKS
     Route: 042

REACTIONS (9)
  - Hypoaesthesia [Recovering/Resolving]
  - Dysphagia [Recovering/Resolving]
  - Speech disorder [Recovering/Resolving]
  - Feeling cold [Not Recovered/Not Resolved]
  - Unevaluable event [Unknown]
  - Fear [Recovering/Resolving]
  - Product dose omission issue [Recovered/Resolved]
  - Asthenia [Recovered/Resolved]
  - Hypoaesthesia oral [Recovering/Resolving]

NARRATIVE: CASE EVENT DATE: 2021
